FAERS Safety Report 10470136 (Version 1)
Quarter: 2014Q3

REPORT INFORMATION
  Report Type: Spontaneous
  Country: US (occurrence: US)
  Receive Date: 20140923
  Receipt Date: 20140923
  Transmission Date: 20150326
  Serious: No
  Sender: FDA-Public Use
  Company Number: US-PFIZER INC-2014260326

PATIENT
  Age: 33 Year
  Sex: Female
  Weight: 61.22 kg

DRUGS (5)
  1. FUCOIDAN [Concomitant]
     Dosage: UNK
  2. ZYRTEC [Concomitant]
     Active Substance: CETIRIZINE HYDROCHLORIDE
     Dosage: UNK, PRN
  3. VITAMIN B12 [Concomitant]
     Active Substance: CYANOCOBALAMIN
     Dosage: UNK
  4. SUTENT [Suspect]
     Active Substance: SUNITINIB MALATE
     Dosage: 50 MG, CYCLIC (DAILY FOR 28 DAYS ON AND THEN 14 DAY BREAK)
     Dates: start: 2014
  5. FOLIC ACID. [Concomitant]
     Active Substance: FOLIC ACID
     Dosage: UNK

REACTIONS (7)
  - Pain in extremity [Unknown]
  - Acne [Unknown]
  - Yellow skin [Unknown]
  - Blister [Unknown]
  - Blood bilirubin increased [Unknown]
  - Glossodynia [Unknown]
  - Eye colour change [Unknown]

NARRATIVE: CASE EVENT DATE: 2014
